FAERS Safety Report 9398863 (Version 2)
Quarter: 2013Q4

REPORT INFORMATION
  Report Type: Spontaneous
  Country: US (occurrence: US)
  Receive Date: 20130712
  Receipt Date: 20131128
  Transmission Date: 20140711
  Serious: Yes (Hospitalization, Other)
  Sender: FDA-Public Use
  Company Number: US-ELI_LILLY_AND_COMPANY-US201307002806

PATIENT
  Age: 85 Year
  Sex: Male

DRUGS (16)
  1. HUMULIN 30% REGULAR, 70% NPH [Suspect]
     Indication: DIABETES MELLITUS
     Dosage: UNK
     Route: 065
     Dates: end: 201107
  2. HUMALOG 25% LISPRO, 75% NPL [Suspect]
     Indication: DIABETES MELLITUS
     Dosage: UNK
     Route: 065
     Dates: start: 201107
  3. HUMALOG 25% LISPRO, 75% NPL [Suspect]
     Dosage: UNK
     Route: 065
  4. PREVACID [Concomitant]
     Dosage: UNK, UNKNOWN
  5. CLOPIDOGREL [Concomitant]
     Dosage: UNK, UNKNOWN
  6. FUROSEMIDE [Concomitant]
     Dosage: UNK, UNKNOWN
  7. LEVOTHYROXINE [Concomitant]
     Dosage: UNK, UNKNOWN
  8. CALTRATE                           /00751519/ [Concomitant]
     Dosage: UNK, UNKNOWN
  9. VITAMIN D [Concomitant]
     Dosage: UNK, UNKNOWN
  10. ALENDRONATE [Concomitant]
     Dosage: UNK, UNKNOWN
  11. AMLODIPINE [Concomitant]
     Dosage: UNK, UNKNOWN
  12. CREON [Concomitant]
     Dosage: UNK, UNKNOWN
  13. PRAVASTATIN [Concomitant]
     Dosage: UNK, UNKNOWN
  14. ARICEPT [Concomitant]
     Dosage: UNK, UNKNOWN
  15. NAMENDA [Concomitant]
     Dosage: UNK, UNKNOWN
  16. VITAMIN C [Concomitant]
     Dosage: UNK, UNKNOWN

REACTIONS (11)
  - Blood glucose increased [Unknown]
  - Pneumonia [Unknown]
  - Cardiac failure congestive [Unknown]
  - Renal failure [Unknown]
  - Dementia Alzheimer^s type [Not Recovered/Not Resolved]
  - Sepsis [Unknown]
  - Hallucination [Unknown]
  - Sluggishness [Unknown]
  - Pallor [Unknown]
  - Incontinence [Unknown]
  - Incorrect product storage [Unknown]
